FAERS Safety Report 5210406-9 (Version None)
Quarter: 2007Q1

REPORT INFORMATION
  Report Type: 
  Country: None (occurrence: None)
  Receive Date: 20070117
  Receipt Date: 20070111
  Transmission Date: 20070707
  Serious: Yes (Other)
  Sender: FDA-Public Use
  Company Number: 2007UW00593

PATIENT
  Age: 11 Month
  Sex: Male
  Weight: 9.5 kg

DRUGS (6)
  1. PULMICORT RESPULES [Suspect]
     Indication: WHEEZING
     Route: 055
     Dates: start: 20061101
  2. PULMICORT RESPULES [Suspect]
     Indication: COUGH
     Route: 055
     Dates: start: 20061101
  3. XOPENEX [Concomitant]
  4. PREVACID [Concomitant]
  5. DECADRON [Concomitant]
  6. ZITHROMAX [Concomitant]

REACTIONS (4)
  - CHEST X-RAY ABNORMAL [None]
  - LIVER FUNCTION TEST ABNORMAL [None]
  - PLATELET COUNT DECREASED [None]
  - PURPURA [None]
